FAERS Safety Report 14370261 (Version 1)
Quarter: 2018Q1

REPORT INFORMATION
  Report Type: Report from Study
  Country: CA (occurrence: CA)
  Receive Date: 20180110
  Receipt Date: 20180110
  Transmission Date: 20180509
  Serious: Yes (Other)
  Sender: FDA-Public Use
  Company Number: CA-LEO PHARMA-306822

PATIENT
  Sex: Female

DRUGS (1)
  1. DAIVOBET [Suspect]
     Active Substance: BETAMETHASONE DIPROPIONATE\CALCIPOTRIENE
     Indication: PSORIASIS
     Route: 061

REACTIONS (4)
  - Arthritis [Unknown]
  - Drug ineffective [Unknown]
  - Liver function test increased [Unknown]
  - Psoriasis [Unknown]
